FAERS Safety Report 17007331 (Version 1)
Quarter: 2019Q4

REPORT INFORMATION
  Report Type: Spontaneous
  Country: US (occurrence: US)
  Receive Date: 20191108
  Receipt Date: 20191108
  Transmission Date: 20200122
  Serious: No
  Sender: FDA-Public Use
  Company Number: US-AJANTA PHARMA USA INC.-2076619

PATIENT
  Age: 62 Year
  Sex: Male
  Weight: 97.73 kg

DRUGS (3)
  1. FISH OIL [Concomitant]
     Active Substance: FISH OIL
  2. SILDENAFIL (ANDA 206401) [Suspect]
     Active Substance: SILDENAFIL CITRATE
     Indication: ERECTILE DYSFUNCTION
     Route: 048
  3. MULTIVITAMIN [Concomitant]
     Active Substance: VITAMINS

REACTIONS (4)
  - Drug ineffective [Recovered/Resolved]
  - Discomfort [Recovered/Resolved]
  - Sinus congestion [Recovered/Resolved]
  - Product substitution issue [Recovered/Resolved]

NARRATIVE: CASE EVENT DATE: 20190803
